FAERS Safety Report 4790247-7 (Version None)
Quarter: 2005Q3

REPORT INFORMATION
  Report Type: 
  Country: None (occurrence: None)
  Receive Date: 20050914
  Receipt Date: 20050713
  Transmission Date: 20060218
  Serious: Yes (Death)
  Sender: FDA-Public Use
  Company Number: 062-20785-05070317

PATIENT
  Age: 45 Year
  Sex: Male

DRUGS (6)
  1. THALIDOMIDE  - PHARMION (THALIDOMIDE) (CAPSULES) [Suspect]
     Indication: MALIGNANT MELANOMA
     Dosage: 50 MG, DAILY, ORAL
     Route: 048
     Dates: start: 20050601
  2. TEMOZOLOMIDE (TEMOZOLOMIDE) [Concomitant]
  3. DEXAMETHASONE [Concomitant]
  4. OLIBAN [Concomitant]
  5. FAMCICLOVIR (FAMCICLOVIR) [Concomitant]
  6. HEPARIN [Concomitant]

REACTIONS (3)
  - DEATH [None]
  - DISEASE PROGRESSION [None]
  - GENERAL PHYSICAL HEALTH DETERIORATION [None]
